FAERS Safety Report 12554480 (Version 1)
Quarter: 2016Q3

REPORT INFORMATION
  Report Type: Spontaneous
  Country: US (occurrence: US)
  Receive Date: 20160713
  Receipt Date: 20160713
  Transmission Date: 20161109
  Serious: No
  Sender: FDA-Public Use
  Company Number: US-ROCHE-1743346

PATIENT
  Sex: Female
  Weight: 46.27 kg

DRUGS (8)
  1. CHANTIX [Suspect]
     Active Substance: VARENICLINE TARTRATE
     Indication: EX-TOBACCO USER
     Dosage: UNKNOWN
     Route: 048
  2. BENADRYL [Concomitant]
     Active Substance: DIPHENHYDRAMINE HYDROCHLORIDE
     Indication: HYPERSENSITIVITY
     Dosage: 25MG TWO TABLET BY MOUTH DAILY?START DATE: ALL HER LIFE.
     Route: 048
  3. SUDAFED (UNITED STATES) [Concomitant]
     Indication: HYPERSENSITIVITY
     Dosage: 30MG ONE TABLET BY MOUTH AS NEEDED?START DATE: ON AND OFF ALL OF HER LIFE. SHE TOOK A 125MG DOSE BEF
     Route: 048
  4. FOSAMAX [Concomitant]
     Active Substance: ALENDRONATE SODIUM
  5. SINGULAIR [Concomitant]
     Active Substance: MONTELUKAST SODIUM
     Indication: HYPERSENSITIVITY
     Dosage: 10MG ONE TABLET BY MOUTH DAILY?START DATE: 13 OR 14 YEARS AGO.
     Route: 048
  6. SUDAFED (UNITED STATES) [Concomitant]
     Indication: NASAL CONGESTION
  7. ZOLOFT [Concomitant]
     Active Substance: SERTRALINE HYDROCHLORIDE
     Indication: ANTIDEPRESSANT THERAPY
     Dosage: UNCERTAIN ONCE A DAY BY MOUTH
     Route: 048
  8. BONVIVA [Suspect]
     Active Substance: IBANDRONATE SODIUM
     Indication: PRODUCT USED FOR UNKNOWN INDICATION
     Route: 065

REACTIONS (1)
  - Vomiting [Recovered/Resolved]
